FAERS Safety Report 5815098-3 (Version None)
Quarter: 2008Q3

REPORT INFORMATION
  Report Type: 
  Country: None (occurrence: None)
  Receive Date: 20080718
  Receipt Date: 20080710
  Transmission Date: 20090109
  Serious: Yes (Death)
  Sender: FDA-Public Use
  Company Number: JP-MERCK-0807USA02403

PATIENT

DRUGS (5)
  1. TRYPTANOL [Suspect]
     Indication: COMPLETED SUICIDE
     Route: 048
  2. SILECE [Suspect]
     Indication: COMPLETED SUICIDE
     Route: 048
  3. DIPHENHYDRAMINE HYDROCHLORIDE [Suspect]
     Indication: COMPLETED SUICIDE
     Route: 048
  4. [THERAPY UNSPECIFIED] [Suspect]
     Indication: COMPLETED SUICIDE
     Route: 048
  5. [THERAPY UNSPECIFIED] [Suspect]
     Route: 048

REACTIONS (1)
  - COMPLETED SUICIDE [None]
